FAERS Safety Report 9208947 (Version 1)
Quarter: 2013Q2

REPORT INFORMATION
  Report Type: Spontaneous
  Country: MX (occurrence: MX)
  Receive Date: 20130404
  Receipt Date: 20130404
  Transmission Date: 20140414
  Serious: Yes (Hospitalization)
  Sender: FDA-Public Use
  Company Number: PHHY2012MX128205

PATIENT
  Age: 69 Year
  Sex: Male

DRUGS (1)
  1. ONBREZ [Suspect]
     Indication: BRONCHITIS
     Dosage: 300 UG, DAILY
     Dates: start: 2011

REACTIONS (2)
  - Lung infection [Recovered/Resolved]
  - Off label use [Unknown]
